FAERS Safety Report 5343633-0 (Version None)
Quarter: 2007Q2

REPORT INFORMATION
  Report Type: 
  Country: None (occurrence: None)
  Receive Date: 20070531
  Receipt Date: 20070515
  Transmission Date: 20071010
  Serious: Yes (Hospitalization)
  Sender: FDA-Public Use
  Company Number: 2007JP001257

PATIENT
  Age: 79 Year
  Sex: Male
  Weight: 48 kg

DRUGS (14)
  1. PROGRAF [Suspect]
     Indication: MYASTHENIA GRAVIS
     Dosage: SEE IMAGE
     Route: 048
     Dates: start: 20070121, end: 20070217
  2. PROGRAF [Suspect]
     Indication: MYASTHENIA GRAVIS
     Dosage: SEE IMAGE
     Route: 048
     Dates: start: 20070307
  3. SEROQUEL [Suspect]
     Indication: DELIRIUM
     Dosage: 75 MG, BID, ORAL
     Route: 048
     Dates: start: 20070206, end: 20070217
  4. ERYTHROCIN [Suspect]
     Indication: BRONCHITIS CHRONIC
     Dosage: 150 MG, TID, ORAL
     Route: 048
     Dates: start: 20070116
  5. PREDNISOLONE [Concomitant]
  6. SYMMETREL [Concomitant]
  7. MOBIC [Concomitant]
  8. MUCOSOLVAN (AMBROXOL HYDROCHLORIDE) TABLET [Concomitant]
  9. ACINON (NIZATIDINE) CAPSULE [Concomitant]
  10. MYTELASE (AMBENONIUM CHLORIDE) TABLET [Concomitant]
  11. RISEDRONATE SODIUM [Concomitant]
  12. RACOL PER ORAL NOS [Concomitant]
  13. SWORD (PRULIFLOXACIN) TABLET [Concomitant]
  14. ALEVIATIN (PHENYTOIN) INJECTION [Concomitant]

REACTIONS (12)
  - ALTERED STATE OF CONSCIOUSNESS [None]
  - DELIRIUM [None]
  - DRUG INTERACTION [None]
  - GASTROINTESTINAL FISTULA [None]
  - HERPES ZOSTER [None]
  - HYPERCAPNIA [None]
  - HYPERGLYCAEMIA [None]
  - MYOCLONUS [None]
  - NEURALGIA [None]
  - PNEUMONIA ASPIRATION [None]
  - RENAL IMPAIRMENT [None]
  - URINE OUTPUT DECREASED [None]
